FAERS Safety Report 7762782-0 (Version None)
Quarter: 2011Q3

REPORT INFORMATION
  Report Type: 
  Country: None (occurrence: None)
  Receive Date: 20110920
  Receipt Date: 20110916
  Transmission Date: 20111222
  Serious: Yes (Hospitalization, Other)
  Sender: FDA-Public Use
  Company Number: DE-JHP PHARMACEUTICALS, LLC-JHP201100457

PATIENT
  Age: 41 Year
  Sex: Female

DRUGS (2)
  1. DEXAMETHASONE [Suspect]
     Indication: ANAPHYLACTIC REACTION
     Dosage: 40 MG, IN 500 ML RINGER SOLUTION
     Route: 042
  2. EPINEPHRINE [Suspect]
     Indication: ANAPHYLACTIC REACTION
     Dosage: 5 MG, IN 500 ML RINGER SOLUTION
     Route: 042

REACTIONS (3)
  - HYPERTENSIVE CARDIOMYOPATHY [None]
  - TACHYCARDIA [None]
  - CEREBRAL HAEMORRHAGE [None]
